FAERS Safety Report 5466309-8 (Version None)
Quarter: 2007Q3

REPORT INFORMATION
  Report Type: 
  Country: None (occurrence: None)
  Receive Date: 20070920
  Receipt Date: 20070905
  Transmission Date: 20080115
  Serious: Yes (Other)
  Sender: FDA-Public Use
  Company Number: 2007US002029

PATIENT
  Age: 49 Year
  Sex: Female
  Weight: 60.8 kg

DRUGS (6)
  1. AMEVIVE [Suspect]
     Indication: PSORIASIS
     Dosage: INTRAMUSCULAR; IV NOS
     Dates: start: 20030904
  2. LIDEX [Concomitant]
  3. FLUOCINONIDE [Concomitant]
  4. DOVONEX (CALCIPOTRIOL) [Concomitant]
  5. XANAX [Concomitant]
  6. TOPICORT [Concomitant]

REACTIONS (2)
  - BASAL CELL CARCINOMA [None]
  - INFLAMMATION [None]
